FAERS Safety Report 6492372-1 (Version None)
Quarter: 2009Q4

REPORT INFORMATION
  Report Type: 
  Country: None (occurrence: None)
  Receive Date: 20091214
  Receipt Date: 20091204
  Transmission Date: 20100525
  Serious: Yes (Other)
  Sender: FDA-Public Use
  Company Number: JP-ASTRAZENECA-2009SE25236

PATIENT
  Age: 56 Year
  Sex: Female

DRUGS (9)
  1. DIPRIVAN [Suspect]
     Indication: INDUCTION OF ANAESTHESIA
     Route: 042
     Dates: start: 20090514, end: 20090514
  2. CARBOCAIN INJECTION [Suspect]
     Indication: EPIDURAL ANAESTHESIA
     Dosage: CONCENTRATION UNKNOWN
     Route: 008
     Dates: start: 20090514, end: 20090514
  3. ANAPEINE INJECTION [Suspect]
     Indication: EPIDURAL ANAESTHESIA
     Route: 008
     Dates: start: 20090514, end: 20090514
  4. ROCURONIUM BROMIDE [Concomitant]
     Indication: INDUCTION OF ANAESTHESIA
     Dosage: DOSE UNKNOWN
     Route: 042
  5. ISOFLURANE [Concomitant]
     Indication: MAINTENANCE OF ANAESTHESIA
     Dosage: DOSE UNKNOWN
     Route: 055
  6. FENTANYL-100 [Concomitant]
     Indication: ANALGESIC THERAPY
     Dosage: DOSE UNKNOWN, CONTINUOUS ADMINISTRATION
     Route: 042
  7. REMIFENTANIL HYDROCHLORIDE [Concomitant]
     Indication: ANALGESIC THERAPY
     Dosage: DOSE UNKNOWN, CONTINUOUS ADMINISTRATION
     Route: 042
  8. NEOSTIGMINE METHYLSULFATE [Concomitant]
     Indication: ANAESTHESIA REVERSAL
     Route: 065
  9. ATROPINE SULFATE [Concomitant]
     Indication: ANAESTHESIA REVERSAL
     Route: 065

REACTIONS (1)
  - ANGLE CLOSURE GLAUCOMA [None]
